FAERS Safety Report 6733013-5 (Version None)
Quarter: 2010Q2

REPORT INFORMATION
  Report Type: 
  Country: None (occurrence: None)
  Receive Date: 20100514
  Receipt Date: 20100504
  Transmission Date: 20101027
  Serious: Yes (Other)
  Sender: FDA-Public Use
  Company Number: 1000013759

PATIENT
  Age: 83 Year
  Sex: Female

DRUGS (2)
  1. MEMANTINE HCL [Suspect]
     Indication: DEMENTIA ALZHEIMER'S TYPE
     Dosage: ORAL
     Route: 048
     Dates: end: 20091107
  2. EVISTA [Suspect]
     Dates: start: 20091107, end: 20091209

REACTIONS (6)
  - CONDITION AGGRAVATED [None]
  - DELIRIUM [None]
  - DRUG DISPENSING ERROR [None]
  - DRUG LABEL CONFUSION [None]
  - DRUG NAME CONFUSION [None]
  - WRONG DRUG ADMINISTERED [None]
